FAERS Safety Report 11738673 (Version 1)
Quarter: 2015Q4

REPORT INFORMATION
  Report Type: Spontaneous
  Country: US (occurrence: US)
  Receive Date: 20151113
  Receipt Date: 20151113
  Transmission Date: 20160304
  Serious: No
  Sender: FDA-Public Use
  Company Number: US-INVAGEN PHARMACEUTICALS, INC.-1044192

PATIENT
  Age: 61 Year
  Sex: Male
  Weight: 79.55 kg

DRUGS (5)
  1. VITAMIN A AND VITAMIN D [Concomitant]
     Active Substance: PETROLATUM
  2. GABAPENTIN. [Suspect]
     Active Substance: GABAPENTIN
     Indication: MUSCLE SPASMS
     Route: 048
  3. CLORAZEPATE DIPOTASSIUM. [Concomitant]
     Active Substance: CLORAZEPATE DIPOTASSIUM
  4. HUMULIN 70/30 [Concomitant]
     Active Substance: INSULIN HUMAN
  5. NEXIUM [Concomitant]
     Active Substance: ESOMEPRAZOLE MAGNESIUM

REACTIONS (4)
  - Amnesia [Unknown]
  - Confusional state [Unknown]
  - Off label use [Unknown]
  - Incorrect dosage administered [Unknown]
